FAERS Safety Report 23682577 (Version 1)
Quarter: 2024Q1

REPORT INFORMATION
  Report Type: Spontaneous
  Country: US (occurrence: None)
  Receive Date: 20240327
  Receipt Date: 20240327
  Transmission Date: 20240410
  Serious: Yes (Death)
  Sender: FDA-Public Use
  Company Number: None

PATIENT
  Age: 87 Year
  Sex: Male

DRUGS (11)
  1. OFEV [Suspect]
     Active Substance: NINTEDANIB
     Indication: Idiopathic pulmonary fibrosis
     Dosage: 100MG BID ORAL
     Route: 048
     Dates: start: 20180413, end: 20230510
  2. LEVOTHYROXINE [Concomitant]
  3. FLECAINIDE [Concomitant]
     Active Substance: FLECAINIDE
  4. ATORVASTATIN [Concomitant]
  5. aspirin [Concomitant]
  6. LISINOPRIL [Concomitant]
  7. FAMOTIDINE [Concomitant]
  8. LEVOTHYROXINE [Concomitant]
  9. MEMANTINE [Concomitant]
  10. HUMULIN N [Concomitant]
     Active Substance: INSULIN HUMAN
  11. ALBUTEROL [Concomitant]
     Active Substance: ALBUTEROL

REACTIONS (3)
  - Cystitis [None]
  - Chronic obstructive pulmonary disease [None]
  - Hospice care [None]

NARRATIVE: CASE EVENT DATE: 20230509
